FAERS Safety Report 25145538 (Version 4)
Quarter: 2025Q3

REPORT INFORMATION
  Report Type: Report from Study
  Country: US (occurrence: US)
  Receive Date: 20250401
  Receipt Date: 20250801
  Transmission Date: 20251021
  Serious: No
  Sender: ACADIA PHARMACEUTICALS
  Company Number: US-ACADIA PHARMACEUTICALS INC.-ACA-2025-TRF-003455

PATIENT
  Sex: Female

DRUGS (2)
  1. DAYBUE [Suspect]
     Active Substance: TROFINETIDE
     Indication: Rett syndrome
     Dosage: 40 MILLILITER, BID
  2. BENEFIBER [Suspect]
     Active Substance: STARCH, WHEAT
     Indication: Diarrhoea
     Route: 065

REACTIONS (4)
  - Breath holding [Not Recovered/Not Resolved]
  - Flatulence [Not Recovered/Not Resolved]
  - Social problem [Not Recovered/Not Resolved]
  - Diarrhoea [Not Recovered/Not Resolved]
